FAERS Safety Report 10081621 (Version 2)
Quarter: 2014Q2

REPORT INFORMATION
  Report Type: Spontaneous
  Country: CA (occurrence: None)
  Receive Date: 20140414
  Receipt Date: 20140422
  Transmission Date: 20141212
  Serious: Yes (Hospitalization)
  Sender: FDA-Public Use
  Company Number: AUR-APL-2014-04412

PATIENT
  Age: 79 Year
  Sex: Male

DRUGS (16)
  1. RAMIPRIL (RAMIPRIL) [Suspect]
     Indication: PROPHYLAXIS
     Dosage: (10 MG,1 D)
     Dates: start: 2004
  2. LORAZEPAM (LORAZEPAM) [Suspect]
     Indication: INSOMNIA
  3. EPLERENONE [Suspect]
     Indication: CARDIAC FAILURE
     Dosage: (25 MG,1 D)
  4. TRAZODONE HYDROCHLORIDE (TRAZODONE HYDROCHLORIDE) [Suspect]
     Indication: INSOMNIA
  5. ACETYLSALICYLIC ACID [Concomitant]
  6. METOPROLOL [Concomitant]
  7. ATORVASTATIN [Concomitant]
  8. METFORMIN [Concomitant]
  9. GLYBURIDE (GLIBENCLAMID) [Concomitant]
  10. SITAGLIPTIN PHOSPHATE [Concomitant]
  11. VITAMIN D (ERGOCALCIFEROL) [Concomitant]
  12. LACTULOSE [Concomitant]
  13. METAMUCIL (PLANTAGO OVATA) [Concomitant]
  14. TOLTERODINE [Concomitant]
  15. PANTOPRAZOLE [Concomitant]
  16. VITAMIN B12 (CYANOCOBALAMIN) [Concomitant]

REACTIONS (9)
  - Immobile [None]
  - Fall [None]
  - Orthostatic hypotension [None]
  - Dizziness [None]
  - Blood potassium increased [None]
  - Nausea [None]
  - Anxiety [None]
  - Balance disorder [None]
  - Blood glucose decreased [None]
